FAERS Safety Report 5052521-9 (Version None)
Quarter: 2006Q3

REPORT INFORMATION
  Report Type: 
  Country: None (occurrence: None)
  Receive Date: 20060717
  Receipt Date: 20060220
  Transmission Date: 20061208
  Serious: Yes (Hospitalization)
  Sender: FDA-Public Use
  Company Number: PHBS2006JP02907

PATIENT
  Age: 68 Year
  Sex: Male
  Weight: 65 kg

DRUGS (6)
  1. PREDONINE [Concomitant]
     Dosage: 5 MG/D
     Route: 048
     Dates: start: 20040903
  2. NEORAL [Suspect]
     Indication: EOSINOPHILIA
     Dosage: 300 MG/D
     Route: 048
     Dates: start: 20050704, end: 20060216
  3. NU LOTAN [Suspect]
     Indication: HYPERTENSION
     Dosage: 50 MG/D
     Route: 048
     Dates: start: 20041216, end: 20060216
  4. BONALON [Concomitant]
     Dosage: 5 MG/D
     Route: 048
     Dates: start: 20051101
  5. TAKEPRON [Concomitant]
     Dosage: 15 MG/D
     Route: 048
     Dates: start: 20041208
  6. ALESION [Concomitant]
     Dosage: 40 MG/D
     Route: 048
     Dates: start: 20050405

REACTIONS (16)
  - ABDOMINAL PAIN [None]
  - ALANINE AMINOTRANSFERASE INCREASED [None]
  - ASPARTATE AMINOTRANSFERASE INCREASED [None]
  - BLOOD CREATINE PHOSPHOKINASE INCREASED [None]
  - BLOOD CREATININE INCREASED [None]
  - BLOOD LACTATE DEHYDROGENASE INCREASED [None]
  - BLOOD PRESSURE DECREASED [None]
  - C-REACTIVE PROTEIN INCREASED [None]
  - DIARRHOEA [None]
  - EATING DISORDER [None]
  - EOSINOPHILIA [None]
  - GAIT DISTURBANCE [None]
  - PYREXIA [None]
  - RENAL FAILURE ACUTE [None]
  - RHABDOMYOLYSIS [None]
  - URINE OUTPUT DECREASED [None]
